FAERS Safety Report 7382248-X (Version None)
Quarter: 2011Q1

REPORT INFORMATION
  Report Type: 
  Country: None (occurrence: None)
  Receive Date: 20110329
  Receipt Date: 20110119
  Transmission Date: 20110831
  Serious: No
  Sender: FDA-Public Use
  Company Number: US-BAYER-2011-006998

PATIENT
  Sex: Female
  Weight: 15.873 kg

DRUGS (1)
  1. ALEVE [Suspect]
     Dosage: 1 DF, ONCE, BOTTLE COUNT 20S
     Route: 048
     Dates: start: 20110119

REACTIONS (1)
  - NO ADVERSE EVENT [None]
